FAERS Safety Report 23321064 (Version 1)
Quarter: 2023Q4

REPORT INFORMATION
  Report Type: Spontaneous
  Country: KR (occurrence: KR)
  Receive Date: 20231220
  Receipt Date: 20231220
  Transmission Date: 20240109
  Serious: Yes (Other)
  Sender: FDA-Public Use
  Company Number: KR-MYLANLABS-2023M1135381

PATIENT
  Age: 63 Year
  Sex: Female

DRUGS (4)
  1. GABAPENTIN [Suspect]
     Active Substance: GABAPENTIN
     Indication: Hypoaesthesia
     Dosage: 300 MILLIGRAM, QD
     Route: 065
  2. BACLOFEN [Suspect]
     Active Substance: BACLOFEN
     Indication: Hiccups
     Dosage: 10 MILLIGRAM
     Route: 065
     Dates: start: 202107
  3. BACLOFEN [Suspect]
     Active Substance: BACLOFEN
     Indication: Musculoskeletal stiffness
  4. LYRICA [Concomitant]
     Active Substance: PREGABALIN
     Indication: Neuropathy peripheral
     Dosage: UNK
     Route: 065
     Dates: start: 202105

REACTIONS (5)
  - Depressed level of consciousness [Recovered/Resolved]
  - Asthenia [Recovered/Resolved]
  - Ataxia [Recovered/Resolved]
  - Confusional state [Recovered/Resolved]
  - Off label use [Unknown]
